FAERS Safety Report 6059241-2 (Version None)
Quarter: 2009Q1

REPORT INFORMATION
  Report Type: 
  Country: None (occurrence: None)
  Receive Date: 20090130
  Receipt Date: 20090123
  Transmission Date: 20090719
  Serious: Yes (Hospitalization)
  Sender: FDA-Public Use
  Company Number: GB-MERCK-0901GBR00083

PATIENT
  Sex: Female

DRUGS (41)
  1. ZOCOR [Suspect]
     Route: 048
  2. DIVALPROEX SODIUM [Suspect]
     Route: 048
  3. FLUOXETINE [Suspect]
     Route: 065
     Dates: start: 20080120, end: 20080224
  4. FLUOXETINE [Suspect]
     Route: 065
     Dates: start: 20080225
  5. FLUOXETINE [Suspect]
     Route: 065
     Dates: start: 20071231, end: 20080119
  6. CLOMIPRAMINE HYDROCHLORIDE [Suspect]
     Route: 048
     Dates: start: 19830101, end: 20071210
  7. CLOMIPRAMINE HYDROCHLORIDE [Suspect]
     Route: 065
  8. CLOMIPRAMINE HYDROCHLORIDE [Suspect]
     Route: 065
     Dates: start: 20080101
  9. QUETIAPINE FUMARATE [Suspect]
     Indication: ANXIETY
     Route: 048
     Dates: start: 20080901
  10. QUETIAPINE FUMARATE [Suspect]
     Route: 048
  11. QUETIAPINE FUMARATE [Suspect]
     Route: 048
  12. QUETIAPINE FUMARATE [Suspect]
     Route: 048
  13. QUETIAPINE FUMARATE [Suspect]
     Route: 048
  14. QUETIAPINE FUMARATE [Suspect]
     Route: 048
  15. QUETIAPINE FUMARATE [Suspect]
     Route: 048
  16. QUETIAPINE FUMARATE [Suspect]
     Route: 048
     Dates: start: 20080401
  17. QUETIAPINE FUMARATE [Suspect]
     Route: 048
     Dates: start: 20081031
  18. QUETIAPINE FUMARATE [Suspect]
     Route: 048
  19. QUETIAPINE FUMARATE [Suspect]
     Route: 048
  20. QUETIAPINE FUMARATE [Suspect]
     Route: 048
  21. QUETIAPINE FUMARATE [Suspect]
     Route: 048
  22. QUETIAPINE FUMARATE [Suspect]
     Route: 048
  23. QUETIAPINE FUMARATE [Suspect]
     Route: 048
     Dates: end: 20081030
  24. QUETIAPINE FUMARATE [Suspect]
     Route: 048
  25. QUETIAPINE FUMARATE [Suspect]
     Indication: DEPRESSION
     Route: 048
     Dates: start: 20080901
  26. QUETIAPINE FUMARATE [Suspect]
     Route: 048
  27. QUETIAPINE FUMARATE [Suspect]
     Route: 048
  28. QUETIAPINE FUMARATE [Suspect]
     Route: 048
  29. QUETIAPINE FUMARATE [Suspect]
     Route: 048
  30. QUETIAPINE FUMARATE [Suspect]
     Route: 048
  31. QUETIAPINE FUMARATE [Suspect]
     Route: 048
  32. QUETIAPINE FUMARATE [Suspect]
     Route: 048
     Dates: start: 20080401
  33. QUETIAPINE FUMARATE [Suspect]
     Route: 048
     Dates: start: 20081031
  34. QUETIAPINE FUMARATE [Suspect]
     Route: 048
  35. QUETIAPINE FUMARATE [Suspect]
     Route: 048
  36. QUETIAPINE FUMARATE [Suspect]
     Route: 048
  37. QUETIAPINE FUMARATE [Suspect]
     Route: 048
  38. QUETIAPINE FUMARATE [Suspect]
     Route: 048
  39. QUETIAPINE FUMARATE [Suspect]
     Route: 048
     Dates: end: 20081030
  40. QUETIAPINE FUMARATE [Suspect]
     Route: 048
  41. ZOPICLONE [Suspect]
     Route: 065

REACTIONS (12)
  - ANXIETY [None]
  - DEPRESSED MOOD [None]
  - DISTURBANCE IN SEXUAL AROUSAL [None]
  - EMOTIONAL DISTRESS [None]
  - EXTRASYSTOLES [None]
  - HEART RATE IRREGULAR [None]
  - NERVOUS SYSTEM DISORDER [None]
  - NIGHTMARE [None]
  - ORTHOSTATIC HYPOTENSION [None]
  - PALPITATIONS [None]
  - SOMNOLENCE [None]
  - SUICIDAL IDEATION [None]
